FAERS Safety Report 5425556-1 (Version None)
Quarter: 2007Q3

REPORT INFORMATION
  Report Type: 
  Country: None (occurrence: None)
  Receive Date: 20070731
  Receipt Date: 20070404
  Transmission Date: 20080115
  Serious: No
  Sender: FDA-Public Use
  Company Number: US200704001294

PATIENT
  Age: 60 Year
  Sex: Female

DRUGS (8)
  1. BYETTA [Suspect]
     Indication: TYPE 2 DIABETES MELLITUS
     Dosage: 5 UG, 2/D, SUBCUTANEOUS
     Route: 058
     Dates: start: 20060601
  2. ESTRACE [Concomitant]
  3. COREG [Concomitant]
  4. METFORMIN HCL [Concomitant]
  5. ZOCOR [Concomitant]
  6. LYRICA [Concomitant]
  7. MAXZIDE [Concomitant]
  8. LASIX [Concomitant]

REACTIONS (6)
  - BLOOD GLUCOSE INCREASED [None]
  - FATIGUE [None]
  - OEDEMA PERIPHERAL [None]
  - RENAL DISORDER [None]
  - SOMNOLENCE [None]
  - STRESS [None]
